FAERS Safety Report 18414516 (Version 3)
Quarter: 2020Q4

REPORT INFORMATION
  Report Type: Report from Study
  Country: JP (occurrence: JP)
  Receive Date: 20201022
  Receipt Date: 20201222
  Transmission Date: 20210114
  Serious: Yes (Hospitalization, Other)
  Sender: FDA-Public Use
  Company Number: JP-ASTELLAS-2020JP015707

PATIENT
  Age: 82 Year
  Sex: Female
  Weight: 51 kg

DRUGS (33)
  1. LANSOPRAZOLE. [Concomitant]
     Active Substance: LANSOPRAZOLE
     Indication: PROPHYLAXIS
     Dosage: 15 MG/DAY, UNKNOWN FREQ.
     Route: 048
  2. FUROSEMIDE. [Concomitant]
     Active Substance: FUROSEMIDE
     Dosage: 10 MG/DAY, UNKNOWN FREQ., INJECTION
     Route: 065
     Dates: start: 20190315, end: 20190315
  3. MAGMITT [Concomitant]
     Active Substance: MAGNESIUM OXIDE
     Indication: COLITIS ISCHAEMIC
  4. PANTOSIN [Concomitant]
     Active Substance: PANTETHINE
     Indication: PRODUCT USED FOR UNKNOWN INDICATION
     Dosage: 600 MG/DAY, UNKNOWN FREQ.
     Route: 048
     Dates: start: 20190301, end: 20190311
  5. PREDNISOLONE. [Suspect]
     Active Substance: PREDNISOLONE
     Indication: PRODUCT USED FOR UNKNOWN INDICATION
     Dosage: 10 MG, ONCE DAILY, TAPERED
     Route: 048
     Dates: start: 20190316, end: 20200421
  6. FEBURIC [Concomitant]
     Active Substance: FEBUXOSTAT
     Indication: PROPHYLAXIS
     Dosage: 40 MG/DAY, UNKNOWN FREQ.
     Route: 048
     Dates: end: 20190226
  7. LINZESS [Concomitant]
     Active Substance: LINACLOTIDE
     Indication: CONSTIPATION
     Dosage: 0.25 MG/DAY, UNKNOWN FREQ.
     Route: 048
     Dates: start: 20190301, end: 20190303
  8. ACLACINON [Suspect]
     Active Substance: ACLARUBICIN HYDROCHLORIDE
     Dosage: 20 MG/DAY, UNKNOWN FREQ., INJECTION
     Route: 065
     Dates: start: 20190313, end: 20190315
  9. GLUFAST [Concomitant]
     Active Substance: MITIGLINIDE
     Indication: TYPE 2 DIABETES MELLITUS
     Dosage: 30 MG/DAY, UNKNOWN FREQ.
     Route: 048
     Dates: end: 20190227
  10. AMLODIPINE BESILATE [Concomitant]
     Active Substance: AMLODIPINE BESYLATE
     Indication: HYPERTENSION
     Dosage: 2.5 MG/DAY, UNKNOWN FREQ.
     Route: 048
     Dates: start: 20190221
  11. FLUCONAZOLE. [Concomitant]
     Active Substance: FLUCONAZOLE
     Indication: ORAL HERPES
     Dosage: 100 MG/DAY, UNKNOWN FREQ.
     Route: 048
     Dates: start: 20190222
  12. MAGMITT [Concomitant]
     Active Substance: MAGNESIUM OXIDE
     Indication: CONSTIPATION
     Dosage: 990 MG/DAY, UNKNOWN FREQ.
     Route: 048
     Dates: start: 20190226, end: 20190227
  13. LINZESS [Concomitant]
     Active Substance: LINACLOTIDE
     Indication: COLITIS ISCHAEMIC
  14. GRANISETRON HYDROCHLORIDE. [Concomitant]
     Active Substance: GRANISETRON HYDROCHLORIDE
     Indication: PROPHYLAXIS
     Dosage: 3 MG/DAY, UNKNOWN FREQ., INJECTION
     Route: 065
     Dates: start: 20190306, end: 20190315
  15. ECLAR [Concomitant]
     Active Substance: DEPRODONE PROPIONATE
     Indication: ECZEMA ASTEATOTIC
     Dosage: UNK UNK, TWICE DAILY
     Route: 050
     Dates: start: 20200501
  16. FIRSTCIN [Suspect]
     Active Substance: CEFOZOPRAN HYDROCHLORIDE
     Indication: PYREXIA
     Dosage: 1000 MG/DAY, UNKNOWN FREQ., INJECTION
     Route: 065
     Dates: end: 20190227
  17. LYRICA [Concomitant]
     Active Substance: PREGABALIN
     Indication: NEUROPATHY PERIPHERAL
     Dosage: 75 MG/DAY, UNKNOWN FREQ.
     Route: 048
     Dates: end: 20190324
  18. MEROPENEM. [Concomitant]
     Active Substance: MEROPENEM
     Indication: COLITIS ISCHAEMIC
     Dosage: 1000 MG/DAY, UNKNOWN FREQ.,INJECTION
     Route: 065
     Dates: start: 20190227, end: 20190311
  19. FILGRASTIM RECOMBINANT [Concomitant]
     Dosage: 75 ?G/DAY, UNKNOWN FREQ.,INJECTION
     Route: 065
     Dates: start: 20190311, end: 20190314
  20. ASP2215 [Suspect]
     Active Substance: GILTERITINIB
     Indication: ACUTE MYELOID LEUKAEMIA REFRACTORY
     Route: 048
     Dates: start: 20190220, end: 20190324
  21. FAMVIR P [Concomitant]
     Indication: ORAL HERPES
     Dosage: 500 MG/DAY, UNKNOWN FREQ.
     Route: 048
     Dates: start: 20190222, end: 20190227
  22. DEXAMETHASONE. [Concomitant]
     Active Substance: DEXAMETHASONE
     Indication: PYREXIA
     Dosage: UNK UNK, UNKNOWN FREQ.
     Route: 048
     Dates: start: 20190227
  23. BAKTAR [Concomitant]
     Active Substance: SULFAMETHOXAZOLE\TRIMETHOPRIM
     Indication: PROPHYLAXIS
     Dosage: 0.5 DF/DAY, UNKNOWN FREQ.
     Route: 048
     Dates: start: 20190302, end: 20190306
  24. ASP2215 [Suspect]
     Active Substance: GILTERITINIB
     Route: 048
     Dates: start: 20190326
  25. ACLACINON [Suspect]
     Active Substance: ACLARUBICIN HYDROCHLORIDE
     Indication: ACUTE MYELOID LEUKAEMIA REFRACTORY
     Dosage: 20 MG/DAY, UNKNOWN FREQ., INJECTION
     Route: 065
     Dates: start: 20190306, end: 20190309
  26. CYLOCIDE [Suspect]
     Active Substance: CYTARABINE
     Indication: ACUTE MYELOID LEUKAEMIA REFRACTORY
     Dosage: 28 MG/DAY, UNKNOWN FREQ., INJECTION
     Route: 065
     Dates: start: 20190306, end: 20190319
  27. FUROSEMIDE. [Concomitant]
     Active Substance: FUROSEMIDE
     Indication: ACUTE KIDNEY INJURY
     Dosage: 20 MG/DAY, UNKNOWN FREQ., INJECTION
     Route: 065
     Dates: end: 20190220
  28. FUROSEMIDE. [Concomitant]
     Active Substance: FUROSEMIDE
     Dosage: 20 MG/DAY, UNKNOWN FREQ., INJECTION
     Route: 065
     Dates: start: 20190302, end: 20190303
  29. FIRSTCIN [Suspect]
     Active Substance: CEFOZOPRAN HYDROCHLORIDE
     Route: 041
     Dates: start: 20190313, end: 20190319
  30. PRAVASTATIN NA [Concomitant]
     Active Substance: PRAVASTATIN SODIUM
     Indication: DYSLIPIDAEMIA
     Dosage: 10 MG/DAY, UNKNOWN FREQ.
     Route: 048
     Dates: end: 20190301
  31. INSULIN GLARGINE [Concomitant]
     Active Substance: INSULIN GLARGINE
     Indication: TYPE 2 DIABETES MELLITUS
     Dosage: UNK UNK, UNKNOWN FREQ., 1 BOTTLE, INJECTION
     Route: 065
     Dates: start: 20180311, end: 20190311
  32. KALIMATE [Concomitant]
     Active Substance: CALCIUM POLYSTYRENE SULFONATE
     Indication: HYPERKALAEMIA
     Dosage: 10.8 G/DAY, UNKNOWN FREQ.
     Route: 048
     Dates: start: 20190221, end: 20190223
  33. FILGRASTIM RECOMBINANT [Concomitant]
     Indication: PYREXIA
     Dosage: 75 ?G/DAY, UNKNOWN FREQ.,INJECTION
     Route: 065
     Dates: start: 20190306, end: 20190307

REACTIONS (13)
  - Constipation [Recovering/Resolving]
  - Pyrexia [Unknown]
  - Hepatic function abnormal [Recovering/Resolving]
  - Enterocolitis haemorrhagic [Recovered/Resolved]
  - Neutrophil count decreased [Recovered/Resolved]
  - Eczema asteatotic [Not Recovered/Not Resolved]
  - Pyrexia [Recovering/Resolving]
  - Colitis ischaemic [Recovered/Resolved]
  - Pyrexia [Recovering/Resolving]
  - Dysuria [Recovered/Resolved]
  - Oral herpes [Recovered/Resolved]
  - Oedema peripheral [Recovered/Resolved]
  - Hyperkalaemia [Recovered/Resolved]

NARRATIVE: CASE EVENT DATE: 20190220
